FAERS Safety Report 6473762-X (Version None)
Quarter: 2009Q4

REPORT INFORMATION
  Report Type: 
  Country: None (occurrence: None)
  Receive Date: 20091204
  Receipt Date: 20091125
  Transmission Date: 20100525
  Serious: Yes (Other)
  Sender: FDA-Public Use
  Company Number: BR-PFIZER INC-2009302456

PATIENT
  Age: 33 Year
  Sex: Female

DRUGS (2)
  1. ECALTA [Suspect]
     Indication: VULVOVAGINAL CANDIDIASIS
     Dosage: UNK
     Route: 042
     Dates: start: 20091115
  2. ECALTA [Suspect]
     Indication: BRONCHOPNEUMONIA

REACTIONS (4)
  - CARDIOTOXICITY [None]
  - DYSPNOEA [None]
  - MYOSITIS [None]
  - PULMONARY HYPERTENSION [None]
